FAERS Safety Report 14018718 (Version 1)
Quarter: 2017Q3

REPORT INFORMATION
  Report Type: Spontaneous
  Country: US (occurrence: US)
  Receive Date: 20170927
  Receipt Date: 20170927
  Transmission Date: 20171128
  Serious: Yes (Life-Threatening, Other)
  Sender: FDA-Public Use
  Company Number: None

PATIENT
  Age: 31 Year
  Sex: Female
  Weight: 72 kg

DRUGS (3)
  1. IBUPROFEN. [Concomitant]
     Active Substance: IBUPROFEN
  2. BUPROPION. [Suspect]
     Active Substance: BUPROPION
     Indication: DEPRESSION
     Dosage: ?          QUANTITY:2 TABLET(S);?
     Route: 048
     Dates: start: 20170912, end: 20170926
  3. CYCLOBENZAPRINE. [Concomitant]
     Active Substance: CYCLOBENZAPRINE

REACTIONS (13)
  - Product substitution issue [None]
  - Pain [None]
  - Anxiety [None]
  - Tremor [None]
  - Withdrawal syndrome [None]
  - Irritability [None]
  - Depression [None]
  - Temperature intolerance [None]
  - Dizziness [None]
  - Headache [None]
  - Insomnia [None]
  - Menstruation delayed [None]
  - Intentional self-injury [None]

NARRATIVE: CASE EVENT DATE: 20170912
